FAERS Safety Report 8522383-3 (Version None)
Quarter: 2012Q3

REPORT INFORMATION
  Report Type: 
  Country: None (occurrence: None)
  Receive Date: 20120719
  Receipt Date: 20120716
  Transmission Date: 20120928
  Serious: No
  Sender: FDA-Public Use
  Company Number: US-PFIZER INC-2012170101

PATIENT
  Sex: Male
  Weight: 92.971 kg

DRUGS (1)
  1. ADVIL [Suspect]
     Indication: TOOTHACHE
     Dosage: 1 CAPSULE, UNK
     Route: 048
     Dates: start: 20120715, end: 20120716

REACTIONS (3)
  - CAPSULE PHYSICAL ISSUE [None]
  - ORAL DISCOMFORT [None]
  - POOR QUALITY DRUG ADMINISTERED [None]
